FAERS Safety Report 8488620-9 (Version None)
Quarter: 2012Q3

REPORT INFORMATION
  Report Type: 
  Country: None (occurrence: None)
  Receive Date: 20120705
  Receipt Date: 20120628
  Transmission Date: 20120928
  Serious: Yes (Other)
  Sender: FDA-Public Use
  Company Number: PHHY2012FR047472

PATIENT
  Sex: Female
  Weight: 71 kg

DRUGS (1)
  1. TASIGNA [Suspect]
     Indication: CHRONIC MYELOID LEUKAEMIA
     Dosage: 400 MG, BID
     Route: 048
     Dates: start: 20091117, end: 20120522

REACTIONS (3)
  - SENSORY DISTURBANCE [None]
  - MEMORY IMPAIRMENT [None]
  - PAIN [None]
